FAERS Safety Report 5326823-2 (Version None)
Quarter: 2007Q2

REPORT INFORMATION
  Report Type: 
  Country: None (occurrence: None)
  Receive Date: 20070516
  Receipt Date: 20070508
  Transmission Date: 20071010
  Serious: Yes (Other)
  Sender: FDA-Public Use
  Company Number: JP-MERCK-01050817

PATIENT
  Age: 0 Day
  Sex: Female

DRUGS (5)
  1. CRIXIVAN [Suspect]
     Indication: HIV INFECTION
     Route: 064
     Dates: start: 19980625, end: 19980630
  2. EPIVIR [Concomitant]
     Indication: HIV INFECTION
     Route: 064
     Dates: start: 19980625, end: 19980630
  3. RETROVIR [Suspect]
     Indication: HIV INFECTION
     Route: 064
     Dates: start: 19980625, end: 19980630
  4. RETROVIR [Suspect]
     Route: 064
     Dates: start: 19980630, end: 19980630
  5. RETROVIR [Suspect]
     Indication: PROPHYLAXIS
     Route: 064
     Dates: start: 19980630, end: 19980811

REACTIONS (1)
  - ANAEMIA [None]
